FAERS Safety Report 9199588 (Version 1)
Quarter: 2013Q1

REPORT INFORMATION
  Report Type: Spontaneous
  Country: US (occurrence: US)
  Receive Date: 20130329
  Receipt Date: 20130329
  Transmission Date: 20140127
  Serious: No
  Sender: FDA-Public Use
  Company Number: US-GLAXOSMITHKLINE-A1008583A

PATIENT
  Age: 55 Year
  Sex: Male

DRUGS (2)
  1. BENLYSTA [Suspect]
     Indication: SYSTEMIC LUPUS ERYTHEMATOSUS
     Dosage: 10NGK UNKNOWN
     Route: 042
  2. NO CONCURRENT MEDICATION [Concomitant]

REACTIONS (3)
  - Infusion related reaction [Unknown]
  - Blister [Unknown]
  - Pruritus [Unknown]
